FAERS Safety Report 11616120 (Version 3)
Quarter: 2015Q4

REPORT INFORMATION
  Report Type: Spontaneous
  Country: JP (occurrence: None)
  Receive Date: 20151009
  Receipt Date: 20151019
  Transmission Date: 20160304
  Serious: Yes (Death, Life-Threatening, Hospitalization, Other)
  Sender: FDA-Public Use
  Company Number: ADR-2015-01434

PATIENT
  Age: 72 Year
  Sex: Male
  Weight: 56 kg

DRUGS (1)
  1. GABALON INTRATHECAL (0.2%) [Suspect]
     Active Substance: BACLOFEN
     Dosage: 376 MCG/DAY

REACTIONS (6)
  - Ventricular fibrillation [None]
  - Dyspnoea [None]
  - Atelectasis [None]
  - Pleural effusion [None]
  - General physical health deterioration [None]
  - Pneumonia [None]
